FAERS Safety Report 8491526 (Version 5)
Quarter: 2012Q4

REPORT INFORMATION
  Report Type: 
  Country: US (occurrence: US)
  Receive Date: 20120403
  Receipt Date: 20121203
  Transmission Date: 20130627
  Serious: Yes (Other)
  Sender: FDA-Public Use
  Company Number: US-PFIZER INC-2012082089

PATIENT
  Age: 49 Year
  Sex: Female
  Weight: 65.76 kg

DRUGS (7)
  1. CHANTIX [Suspect]
     Indication: SMOKING CESSATION THERAPY
     Dosage: 0.5 mg, 1x/day
     Route: 048
     Dates: start: 20120306, end: 201203
  2. CHANTIX [Suspect]
     Dosage: 0.5 mg, 2x/day, for 4 days
     Dates: start: 201203, end: 2012
  3. CHANTIX [Suspect]
     Dosage: 1 mg, 2x/day
     Route: 048
     Dates: start: 201203, end: 20120316
  4. XANAX [Concomitant]
     Dosage: UNK
  5. ARMOUR THYROID [Concomitant]
     Dosage: UNK
  6. TEMAZEPAM [Concomitant]
     Indication: SLEEP PROBLEM
     Dosage: UNK
  7. PAXIL [Concomitant]
     Dosage: UNK

REACTIONS (6)
  - Suicidal ideation [Recovered/Resolved]
  - Suicide attempt [Unknown]
  - Depression suicidal [Unknown]
  - Bipolar I disorder [Unknown]
  - Stress [Unknown]
  - Drug ineffective [Unknown]
